FAERS Safety Report 18327186 (Version 1)
Quarter: 2020Q3

REPORT INFORMATION
  Report Type: Spontaneous
  Country: GB (occurrence: GB)
  Receive Date: 20200930
  Receipt Date: 20200930
  Transmission Date: 20201103
  Serious: Yes (Hospitalization, Other)
  Sender: FDA-Public Use
  Company Number: GB-BAUSCH-BL-2020-027296

PATIENT
  Age: 66 Year
  Sex: Female

DRUGS (15)
  1. PREDNISOLONE. [Suspect]
     Active Substance: PREDNISOLONE
     Indication: RHEUMATOID ARTHRITIS
     Dosage: AS PRESCRIBED REQUIRED
     Route: 065
     Dates: start: 20190524, end: 20200714
  2. PREDNISOLONE. [Suspect]
     Active Substance: PREDNISOLONE
     Dosage: 5 MG, 2X/DAY
     Route: 065
  3. XELJANZ [Suspect]
     Active Substance: TOFACITINIB CITRATE
     Dosage: RESTARTED XELJANZ
     Route: 065
     Dates: start: 20191115, end: 20191223
  4. XELJANZ [Suspect]
     Active Substance: TOFACITINIB CITRATE
     Route: 065
     Dates: start: 20200102, end: 20200203
  5. PARACETAMOL [Suspect]
     Active Substance: ACETAMINOPHEN
     Indication: PRODUCT USED FOR UNKNOWN INDICATION
     Dosage: AS REQUIRED
     Route: 065
  6. OMEPRAZOLE. [Suspect]
     Active Substance: OMEPRAZOLE
     Indication: PRODUCT USED FOR UNKNOWN INDICATION
     Dosage: AS REQUIRED
     Route: 065
  7. XELJANZ [Suspect]
     Active Substance: TOFACITINIB CITRATE
     Dosage: 2.5 MG, 1X/DAY
     Route: 065
  8. XELJANZ [Suspect]
     Active Substance: TOFACITINIB CITRATE
     Dosage: XELJANZ RESTARTED
     Route: 065
     Dates: start: 20190202, end: 20190206
  9. BRUFEN [Suspect]
     Active Substance: IBUPROFEN
     Indication: PRODUCT USED FOR UNKNOWN INDICATION
     Dosage: AS REQUIRED
     Route: 065
  10. PREDNISOLONE. [Suspect]
     Active Substance: PREDNISOLONE
     Indication: RHEUMATOID ARTHRITIS
     Dosage: REDUCE PREDNISOLONE TO 7.5MG (5MG ONE DAY, 10MG THE NEXT)UNK
     Route: 065
  11. XELJANZ [Suspect]
     Active Substance: TOFACITINIB CITRATE
     Indication: RHEUMATOID ARTHRITIS
     Dosage: 2.5 MG, 2X/DAY
     Route: 065
     Dates: start: 20190215, end: 20190524
  12. PREDNISOLONE. [Suspect]
     Active Substance: PREDNISOLONE
     Dosage: SHE OCCASIONALLY HAS TO INCREASE THE PREDNISOLONE TO 10 MGS
     Route: 065
  13. XELJANZ [Suspect]
     Active Substance: TOFACITINIB CITRATE
     Route: 065
     Dates: start: 20200320
  14. XELJANZ [Suspect]
     Active Substance: TOFACITINIB CITRATE
     Route: 065
     Dates: start: 20180816, end: 20190111
  15. PREDNISOLONE. [Suspect]
     Active Substance: PREDNISOLONE
     Route: 065

REACTIONS (33)
  - Deep vein thrombosis [Unknown]
  - Joint swelling [Unknown]
  - Myalgia [Unknown]
  - Urticaria [Unknown]
  - Fluid retention [Unknown]
  - Oropharyngeal pain [Unknown]
  - Impaired quality of life [Unknown]
  - Dyspnoea [Recovered/Resolved]
  - Lower respiratory tract infection [Unknown]
  - Candida infection [Unknown]
  - Malaise [Recovered/Resolved]
  - Synovial cyst [Unknown]
  - Pneumonia [Unknown]
  - Heart rate increased [Recovered/Resolved]
  - Fatigue [Unknown]
  - Dizziness [Unknown]
  - Lower respiratory tract infection [Unknown]
  - Pleuritic pain [Recovered/Resolved]
  - Headache [Unknown]
  - Vision blurred [Unknown]
  - Pruritus [Unknown]
  - Chest discomfort [Recovered/Resolved]
  - Eating disorder [Unknown]
  - Mobility decreased [Unknown]
  - Swelling [Unknown]
  - Lower respiratory tract infection [Unknown]
  - Sleep disorder [Unknown]
  - Inflammation [Unknown]
  - Chest pain [Recovered/Resolved]
  - Constipation [Unknown]
  - Nasal congestion [Unknown]
  - Pain [Unknown]
  - Pain in jaw [Recovering/Resolving]

NARRATIVE: CASE EVENT DATE: 20181201
